FAERS Safety Report 17004780 (Version 1)
Quarter: 2019Q4

REPORT INFORMATION
  Report Type: Spontaneous
  Country: ES (occurrence: ES)
  Receive Date: 20191107
  Receipt Date: 20191107
  Transmission Date: 20200122
  Serious: Yes (Other)
  Sender: FDA-Public Use
  Company Number: ES-MYLANLABS-2019M1106505

PATIENT
  Sex: Female

DRUGS (2)
  1. ACARBOSE. [Suspect]
     Active Substance: ACARBOSE
     Indication: HYPOGLYCAEMIA
     Dosage: UNK
     Route: 065
  2. LIRAGLUTIDE [Suspect]
     Active Substance: LIRAGLUTIDE
     Indication: HYPOGLYCAEMIA
     Dosage: UNK
     Route: 065

REACTIONS (1)
  - Drug ineffective for unapproved indication [Unknown]
